FAERS Safety Report 5466087-2 (Version None)
Quarter: 2007Q3

REPORT INFORMATION
  Report Type: 
  Country: None (occurrence: None)
  Receive Date: 20070924
  Receipt Date: 20070921
  Transmission Date: 20080115
  Serious: Yes (Hospitalization)
  Sender: FDA-Public Use
  Company Number: FRWYE352121SEP07

PATIENT
  Sex: Female
  Weight: 17.5 kg

DRUGS (2)
  1. ADVIL [Suspect]
     Indication: TONSILLITIS
     Route: 048
     Dates: start: 20070621, end: 20070623
  2. SURGAM [Suspect]
     Indication: TONSILLITIS
     Route: 048
     Dates: start: 20070621, end: 20070623

REACTIONS (3)
  - DIARRHOEA [None]
  - LYMPHADENOPATHY [None]
  - VOMITING [None]
